FAERS Safety Report 25073232 (Version 2)
Quarter: 2025Q3

REPORT INFORMATION
  Report Type: Report from Study
  Country: US (occurrence: US)
  Receive Date: 20250313
  Receipt Date: 20250918
  Transmission Date: 20251020
  Serious: Yes (Death, Hospitalization, Other)
  Sender: TAKEDA
  Company Number: US-TAKEDA-2025TUS024082

PATIENT
  Sex: Male
  Weight: 72 kg

DRUGS (2)
  1. FRUQUINTINIB [Suspect]
     Active Substance: FRUQUINTINIB
     Indication: Colon cancer
  2. FRUQUINTINIB [Suspect]
     Active Substance: FRUQUINTINIB

REACTIONS (2)
  - Death [Fatal]
  - Blood iron abnormal [Unknown]
